FAERS Safety Report 8167056-4 (Version None)
Quarter: 2012Q1

REPORT INFORMATION
  Report Type: 
  Country: None (occurrence: None)
  Receive Date: 20120221
  Receipt Date: 20120209
  Transmission Date: 20120608
  Serious: Yes (Hospitalization)
  Sender: FDA-Public Use
  Company Number: 1192434

PATIENT
  Age: 72 Year
  Sex: Male

DRUGS (13)
  1. TARGOCID [Suspect]
     Dosage: 200 MG EVERY OTHER DAY, 2 DAY, HEMODIALYSIS
     Route: 010
     Dates: start: 20110920, end: 20111013
  2. SPIRIVA [Concomitant]
  3. TAMSULOSIN HYDROCHLORIDE [Concomitant]
  4. ARANESP [Concomitant]
  5. GENTAMICIN SULFATE [Suspect]
     Indication: ENDOCARDITIS
     Dosage: 240 MG MILLIGRAM(S), UNKNOWN, INTRAVENOUS (NOT OTHERWISE SPECIFIED)
     Route: 042
     Dates: start: 20110828, end: 20110919
  6. CUBICIN [Suspect]
     Indication: ENDOCARDITIS
     Dosage: 500 MG, EVERY OTHER DAY, 2 DAY, INTRAVENOUS (NOT OTHERWISE SPECIFIED)
     Route: 042
     Dates: start: 20110828, end: 20110915
  7. ROCALTROL [Concomitant]
  8. ADALAT [Concomitant]
  9. LASIX [Concomitant]
  10. NEXIUM [Concomitant]
  11. CORDARONE [Concomitant]
  12. SIMVASTATIN [Concomitant]
  13. BISOPROLOL FUMARATE [Concomitant]

REACTIONS (2)
  - HAEMODIALYSIS [None]
  - CLOSTRIDIUM DIFFICILE COLITIS [None]
